FAERS Safety Report 5219142-6 (Version None)
Quarter: 2007Q1

REPORT INFORMATION
  Report Type: 
  Country: None (occurrence: None)
  Receive Date: 20070124
  Receipt Date: 20070124
  Transmission Date: 20070707
  Serious: Yes (Hospitalization, Other)
  Sender: FDA-Public Use
  Company Number: None

PATIENT
  Age: 68 Year
  Sex: Male
  Weight: 103.4201 kg

DRUGS (10)
  1. LISINOPRIL [Suspect]
     Indication: HYPERTENSION
     Dosage: 5 MG, PO, DAILY
     Route: 048
     Dates: start: 20061009, end: 20061011
  2. OXYCODONE AND ACETAMINOPHEN [Concomitant]
  3. CIPROFLOXACIN HCL [Concomitant]
  4. FLUNISOLIDE [Concomitant]
  5. FORMOTEROL FUMARATE [Concomitant]
  6. IPRATROPIUM BROMIDE [Concomitant]
  7. LEVALBUTEROL HCL [Concomitant]
  8. OMEPRAZOLE [Concomitant]
  9. SENNA [Concomitant]
  10. SIMVASTATIN [Concomitant]

REACTIONS (1)
  - RENAL IMPAIRMENT [None]
